FAERS Safety Report 20185413 (Version 2)
Quarter: 2021Q4

REPORT INFORMATION
  Report Type: Report from Study
  Country: CA (occurrence: CA)
  Receive Date: 20211215
  Receipt Date: 20211224
  Transmission Date: 20220304
  Serious: No
  Sender: FDA-Public Use
  Company Number: CA-ABBVIE-21K-028-4198012-00

PATIENT
  Sex: Female

DRUGS (3)
  1. HUMIRA [Suspect]
     Active Substance: ADALIMUMAB
     Indication: Crohn^s disease
     Route: 058
     Dates: start: 20181219
  2. VITAMIN D [Concomitant]
     Active Substance: VITAMIN D NOS
     Indication: Product used for unknown indication
  3. AZATHIOPRINE [Concomitant]
     Active Substance: AZATHIOPRINE
     Indication: Product used for unknown indication

REACTIONS (2)
  - Crohn^s disease [Unknown]
  - Therapeutic product effect incomplete [Unknown]
